FAERS Safety Report 24347582 (Version 2)
Quarter: 2024Q3

REPORT INFORMATION
  Report Type: Spontaneous
  Country: US (occurrence: US)
  Receive Date: 20240922
  Receipt Date: 20240926
  Transmission Date: 20241016
  Serious: Yes (Other)
  Sender: REGENERON
  Company Number: US-REGENERON PHARMACEUTICALS, INC.-2024-125541

PATIENT
  Sex: Female

DRUGS (2)
  1. EYLEA HD [Suspect]
     Active Substance: AFLIBERCEPT
     Indication: Neovascular age-related macular degeneration
     Dosage: 8 MG, EVERY 6-7 WEEKS, LEFT EYE (BOTH EYES), FORMULATION: HD VIAL
     Dates: start: 20240328, end: 20240815
  2. EYLEA HD [Suspect]
     Active Substance: AFLIBERCEPT
     Indication: Choroidal neovascularisation
     Dosage: 8 MG, EVERY 6-7 WEEKS, RIGHT EYE (BOTH EYES), FORMULATION: HD VIAL
     Dates: start: 20240516, end: 20240815

REACTIONS (3)
  - Scleritis [Not Recovered/Not Resolved]
  - Uveitis [Not Recovered/Not Resolved]
  - Chorioretinitis [Not Recovered/Not Resolved]

NARRATIVE: CASE EVENT DATE: 20240821
